FAERS Safety Report 5429753-0 (Version None)
Quarter: 2007Q3

REPORT INFORMATION
  Report Type: 
  Country: None (occurrence: None)
  Receive Date: 20070731
  Receipt Date: 20070412
  Transmission Date: 20080115
  Serious: No
  Sender: FDA-Public Use
  Company Number: US200704002973

PATIENT
  Age: 53 Year
  Sex: Male

DRUGS (6)
  1. BYETTA [Suspect]
     Indication: TYPE 2 DIABETES MELLITUS
     Dosage: 5 UG, 2/D, SUBCUTANEOUS, 10 UG, EACH MORNING,ORAL,5 UG, EACH EVENING. SUBCUTANEOUS
     Route: 058
     Dates: start: 20070226, end: 20070301
  2. BYETTA [Suspect]
     Indication: TYPE 2 DIABETES MELLITUS
     Dosage: 5 UG, 2/D, SUBCUTANEOUS, 10 UG, EACH MORNING,ORAL,5 UG, EACH EVENING. SUBCUTANEOUS
     Route: 058
     Dates: start: 20070301, end: 20070408
  3. BYETTA [Suspect]
     Indication: TYPE 2 DIABETES MELLITUS
     Dosage: 5 UG, 2/D, SUBCUTANEOUS, 10 UG, EACH MORNING,ORAL,5 UG, EACH EVENING. SUBCUTANEOUS
     Route: 058
     Dates: start: 20070301, end: 20070408
  4. BYETTA [Suspect]
  5. BYETTA [Suspect]
  6. EXENATIDE 5MCG PEN, DISPOSABLE DEVICE (EXENATIDE PEN (5MCG) PEN,DISPOS [Concomitant]

REACTIONS (5)
  - ABDOMINAL DISTENSION [None]
  - FLATULENCE [None]
  - INFLUENZA [None]
  - NASOPHARYNGITIS [None]
  - NAUSEA [None]
